FAERS Safety Report 5142410-3 (Version None)
Quarter: 2006Q4

REPORT INFORMATION
  Report Type: 
  Country: None (occurrence: None)
  Receive Date: 20061030
  Receipt Date: 20061030
  Transmission Date: 20070319
  Serious: Yes (Hospitalization)
  Sender: FDA-Public Use
  Company Number: None

PATIENT
  Sex: Male
  Weight: 65 kg

DRUGS (2)
  1. ALIMTA [Suspect]
     Indication: GASTRIC CANCER
     Dosage: 500 MG/M2    Q21 DAYS IV
     Route: 042
     Dates: start: 20061018
  2. IRINOTECAN HCL [Suspect]
     Indication: GASTRIC CANCER
     Dosage: 350 MG/M2   DAY 5  IV
     Route: 042
     Dates: start: 20061018

REACTIONS (3)
  - CATHETER RELATED INFECTION [None]
  - FEBRILE NEUTROPENIA [None]
  - FEEDING TUBE COMPLICATION [None]
